FAERS Safety Report 24843926 (Version 3)
Quarter: 2025Q4

REPORT INFORMATION
  Report Type: Spontaneous
  Country: EU (occurrence: EU)
  Receive Date: 20250115
  Receipt Date: 20251209
  Transmission Date: 20260118
  Serious: Yes (Other)
  Sender: RANBAXY
  Company Number: EU-SUN PHARMACEUTICAL INDUSTRIES LTD-2021R1-320978

PATIENT
  Age: 30 Year
  Sex: Female

DRUGS (15)
  1. ACYCLOVIR [Suspect]
     Active Substance: ACYCLOVIR
     Indication: Pyoderma gangrenosum
     Dosage: UNK
     Route: 065
  2. METHYLPREDNISOLONE [Suspect]
     Active Substance: METHYLPREDNISOLONE
     Indication: Pyoderma gangrenosum
     Dosage: 12 MILLIGRAM, 1DOSE/24HOUR
     Route: 065
  3. CYCLOSPORINE [Suspect]
     Active Substance: CYCLOSPORINE
     Indication: Pyoderma gangrenosum
     Dosage: 4 MILLIGRAM/KILOGRAM, QD
     Route: 065
  4. CYCLOSPORINE [Suspect]
     Active Substance: CYCLOSPORINE
     Dosage: 3 MILLIGRAM/KILOGRAM, QD
     Route: 065
  5. SULFAMETHOXAZOLE\TRIMETHOPRIM [Suspect]
     Active Substance: SULFAMETHOXAZOLE\TRIMETHOPRIM
     Indication: Pyoderma gangrenosum
     Dosage: UNK
     Route: 065
  6. ETHAMSYLATE [Suspect]
     Active Substance: ETHAMSYLATE
     Indication: Pyoderma gangrenosum
     Dosage: UNK
     Route: 065
  7. CEFTRIAXONE [Suspect]
     Active Substance: CEFTRIAXONE
     Indication: Pyoderma gangrenosum
     Dosage: 2 GRAM, QD
     Route: 065
  8. CLOBETASOL PROPIONATE [Suspect]
     Active Substance: CLOBETASOL PROPIONATE
     Indication: Pyoderma gangrenosum
     Dosage: UNK
     Route: 061
  9. DEXAMETHASONE [Suspect]
     Active Substance: DEXAMETHASONE
     Indication: Pyoderma gangrenosum
     Dosage: 12 MILLIGRAM, QD
     Route: 042
  10. MUPIROCIN [Suspect]
     Active Substance: MUPIROCIN
     Indication: Pyoderma gangrenosum
     Dosage: UNK
     Route: 061
  11. NADROPARIN [Suspect]
     Active Substance: NADROPARIN
     Indication: Coagulopathy
     Dosage: 5700 INTERNATIONAL UNIT, QD
     Route: 065
  12. NADROPARIN [Suspect]
     Active Substance: NADROPARIN
     Indication: Pyoderma gangrenosum
  13. SODIUM CHLORIDE [Suspect]
     Active Substance: SODIUM CHLORIDE
     Indication: Pyoderma gangrenosum
     Dosage: UNK
     Route: 061
  14. PANTOPRAZOLE [Suspect]
     Active Substance: PANTOPRAZOLE
     Indication: Pyoderma gangrenosum
     Dosage: 20 MILLIGRAM, QD
     Route: 065
  15. MESALAMINE [Concomitant]
     Active Substance: MESALAMINE
     Indication: Pyoderma gangrenosum
     Dosage: UNK
     Route: 065

REACTIONS (3)
  - Drug ineffective [Unknown]
  - Colitis ulcerative [Unknown]
  - Diarrhoea [Unknown]
